FAERS Safety Report 14784027 (Version 1)
Quarter: 2018Q2

REPORT INFORMATION
  Report Type: Spontaneous
  Country: SK (occurrence: SK)
  Receive Date: 20180420
  Receipt Date: 20180420
  Transmission Date: 20180711
  Serious: Yes (Life-Threatening)
  Sender: FDA-Public Use
  Company Number: SK-FRESENIUS KABI-FK201804710

PATIENT
  Age: 71 Year
  Sex: Male

DRUGS (2)
  1. DAUNORUBICINE [Suspect]
     Active Substance: DAUNORUBICIN
     Indication: ACUTE MYELOID LEUKAEMIA
     Route: 042
  2. CYTARABINE (MANUFACTURER UNKNOWN) [Suspect]
     Active Substance: CYTARABINE
     Indication: ACUTE MYELOID LEUKAEMIA
     Route: 042

REACTIONS (3)
  - Bronchopulmonary aspergillosis [Unknown]
  - Sepsis [Unknown]
  - Pancytopenia [Unknown]
